FAERS Safety Report 4696269-9 (Version None)
Quarter: 2005Q2

REPORT INFORMATION
  Report Type: 
  Country: None (occurrence: None)
  Receive Date: 20050620
  Receipt Date: 20050606
  Transmission Date: 20051028
  Serious: Yes (Other)
  Sender: FDA-Public Use
  Company Number: 2005059900

PATIENT
  Age: 51 Year
  Sex: Female
  Weight: 63.5036 kg

DRUGS (8)
  1. BEXTRA [Suspect]
     Indication: ARTHRALGIA
     Dosage: (1 IN 1 D), ORAL
     Route: 048
     Dates: end: 20041201
  2. BEXTRA [Suspect]
     Indication: ARTHRITIS
     Dosage: (1 IN 1 D), ORAL
     Route: 048
     Dates: end: 20041201
  3. PREDNISONE                                     T (PREDNISONE) [Suspect]
     Indication: URTICARIA
     Dosage: (20 MG,)
     Route: 048
     Dates: start: 20041201
  4. ULTRACET [Suspect]
     Indication: PAIN
     Dosage: (, 4 AS NECESSARY), ORAL
     Route: 048
  5. METHOTREXATE [Concomitant]
  6. DOCUSATE SODIUM                          (STOOL SOFTENER) [Concomitant]
  7. ESTRADIOL [Concomitant]
  8. ALL OTHER THERAPEUTIC PRODUCTS [Concomitant]

REACTIONS (11)
  - BLOOD URINE [None]
  - DERMATITIS ALLERGIC [None]
  - DIZZINESS [None]
  - ERYTHEMA [None]
  - FLUID RETENTION [None]
  - HIATUS HERNIA [None]
  - PRURITUS [None]
  - SKIN BURNING SENSATION [None]
  - STOMACH DISCOMFORT [None]
  - URTICARIA [None]
  - WEIGHT INCREASED [None]
